FAERS Safety Report 8981468 (Version 1)
Quarter: 2012Q4

REPORT INFORMATION
  Report Type: 
  Country: US (occurrence: US)
  Receive Date: 20121221
  Receipt Date: 20121221
  Transmission Date: 20130627
  Serious: Yes (Hospitalization)
  Sender: FDA-Public Use
  Company Number: US-BAYER-2012-128468

PATIENT
  Age: 37 Year
  Sex: Female

DRUGS (7)
  1. YASMIN [Suspect]
  2. FERROUS SULFATE [Concomitant]
     Dosage: 325 mg, UNK
  3. MOTRIN [Concomitant]
     Dosage: 400 mg, UNK
  4. METHOCARBAMOL [Concomitant]
     Dosage: 500 mg, UNK
  5. NAPROXEN [Concomitant]
     Dosage: 500 mg, UNK
  6. DOCUSATE NA 100^S [Concomitant]
     Dosage: 100 mg, UNK
  7. PERCOCET [Concomitant]

REACTIONS (2)
  - Pulmonary embolism [None]
  - Deep vein thrombosis [None]
